FAERS Safety Report 6183598-5 (Version None)
Quarter: 2009Q2

REPORT INFORMATION
  Report Type: 
  Country: None (occurrence: None)
  Receive Date: 20090508
  Receipt Date: 20090428
  Transmission Date: 20091009
  Serious: Yes (Hospitalization, Other)
  Sender: FDA-Public Use
  Company Number: US-PFIZER INC-2006129699

PATIENT
  Sex: Female
  Weight: 55 kg

DRUGS (10)
  1. SUNITINIB MALATE [Suspect]
     Indication: LUNG NEOPLASM MALIGNANT
     Dosage: 50 MG, 1X/DAY
     Route: 048
     Dates: start: 20060824, end: 20061024
  2. LIPITOR [Concomitant]
     Route: 048
     Dates: start: 20010101
  3. CALCIUM [Concomitant]
     Route: 048
     Dates: start: 20030101
  4. VITAMIN D [Concomitant]
     Route: 048
     Dates: start: 20030101
  5. VITAMIN B COMPLEX CAP [Concomitant]
     Route: 048
     Dates: start: 20050101
  6. IBUPROFEN [Concomitant]
     Route: 048
     Dates: start: 20030101
  7. ALBUTEROL [Concomitant]
     Dosage: 1 PUFF
     Route: 045
     Dates: start: 20060201
  8. COSOPT [Concomitant]
     Dosage: 1 DROP RIGHT EYE
     Route: 047
     Dates: start: 20030413
  9. MILK OF MAGNESIA TAB [Concomitant]
     Dosage: 2 TABLESPOONS
     Route: 048
     Dates: start: 20060530
  10. VALACYCLOVIR HCL [Concomitant]
     Route: 048
     Dates: start: 20060908, end: 20060915

REACTIONS (3)
  - CEREBRAL INFARCTION [None]
  - RENAL FAILURE ACUTE [None]
  - THROMBOCYTOPENIA [None]
